FAERS Safety Report 10542816 (Version 1)
Quarter: 2014Q4

REPORT INFORMATION
  Report Type: Spontaneous
  Country: US (occurrence: None)
  Receive Date: 20141010
  Receipt Date: 20141010
  Transmission Date: 20150529
  Serious: Yes (Hospitalization, Other)
  Sender: FDA-Public Use
  Company Number: 163-POMAL-14074608

PATIENT
  Age: 53 Year
  Sex: Male

DRUGS (1)
  1. POMALYST [Suspect]
     Active Substance: POMALIDOMIDE
     Indication: PLASMA CELL MYELOMA
     Dosage: 21IN 21 D.
     Route: 048
     Dates: start: 201312

REACTIONS (4)
  - Epistaxis [None]
  - Platelet count decreased [None]
  - Full blood count decreased [None]
  - Back pain [None]

NARRATIVE: CASE EVENT DATE: 2014
